FAERS Safety Report 22845729 (Version 5)
Quarter: 2025Q1

REPORT INFORMATION
  Report Type: Spontaneous
  Country: US (occurrence: US)
  Receive Date: 20230821
  Receipt Date: 20250227
  Transmission Date: 20250408
  Serious: No
  Sender: AVADEL CNS PHARMACEUTICALS, LLC
  Company Number: US-AVADEL CNS PHARMACEUTICALS, LLC-2023AVA00014

PATIENT
  Age: 42 Year
  Sex: Female
  Weight: 78.912 kg

DRUGS (16)
  1. LUMRYZ [Suspect]
     Active Substance: SODIUM OXYBATE
     Indication: Narcolepsy
     Dosage: 9 G, ONCE NIGHTLY
     Route: 048
     Dates: start: 20230712, end: 20230718
  2. LUMRYZ [Suspect]
     Active Substance: SODIUM OXYBATE
     Indication: Cataplexy
     Dosage: 9 G, ONCE NIGHTLY
     Route: 048
     Dates: start: 20230825
  3. LUMRYZ [Suspect]
     Active Substance: SODIUM OXYBATE
     Dosage: 9 G, ONCE NIGHTLY
     Route: 048
  4. LUMRYZ [Suspect]
     Active Substance: SODIUM OXYBATE
     Dosage: 9 G, ONCE NIGHTLY
     Route: 048
  5. ZALEPLON [Suspect]
     Active Substance: ZALEPLON
  6. TEMAZEPAM [Suspect]
     Active Substance: TEMAZEPAM
  7. TIZANIDINE [Concomitant]
     Active Substance: TIZANIDINE
  8. VENLAFAXINE HYDROCHLORIDE [Concomitant]
     Active Substance: VENLAFAXINE HYDROCHLORIDE
     Dosage: 150 MG, 1X/DAY
  9. BYSTOLIC [Concomitant]
     Active Substance: NEBIVOLOL HYDROCHLORIDE
     Dosage: 10 MG, 1X/DAY
  10. WELLBUTRIN XL [Concomitant]
     Active Substance: BUPROPION HYDROCHLORIDE
     Dosage: 300 MG, 1X/DAY
  11. DIOVAN [Concomitant]
     Active Substance: VALSARTAN
     Dosage: 320 MG, 1X/DAY
  12. IMITREX [Concomitant]
     Active Substance: SUMATRIPTAN SUCCINATE
  13. ADDERALL [Concomitant]
     Active Substance: AMPHETAMINE ASPARTATE\AMPHETAMINE SULFATE\DEXTROAMPHETAMINE SACCHARATE\DEXTROAMPHETAMINE SULFATE
     Dosage: 10 MG, 1X/DAY
  14. ZOFRAN [Concomitant]
     Active Substance: ONDANSETRON HYDROCHLORIDE
  15. SPIRONOLACTONE [Concomitant]
     Active Substance: SPIRONOLACTONE
  16. VYVANSE [Concomitant]
     Active Substance: LISDEXAMFETAMINE DIMESYLATE

REACTIONS (21)
  - Photopsia [Recovered/Resolved]
  - Dehydration [Unknown]
  - Feeling abnormal [Recovered/Resolved]
  - Middle insomnia [Recovered/Resolved]
  - Hot flush [Recovered/Resolved]
  - Burning sensation [Recovered/Resolved]
  - Muscle tightness [Recovered/Resolved]
  - Pharyngeal paraesthesia [Recovered/Resolved]
  - Skin warm [Recovered/Resolved]
  - Insomnia [Not Recovered/Not Resolved]
  - Head injury [Unknown]
  - Overdose [Not Recovered/Not Resolved]
  - Therapeutic reaction time decreased [Recovered/Resolved]
  - Nausea [Not Recovered/Not Resolved]
  - Disorientation [Recovered/Resolved]
  - Paraesthesia [Recovered/Resolved]
  - Fall [Recovered/Resolved]
  - Therapeutic product effect variable [Not Recovered/Not Resolved]
  - Therapeutic response decreased [Unknown]
  - Product preparation error [Recovered/Resolved]
  - Product administration error [Recovered/Resolved]

NARRATIVE: CASE EVENT DATE: 20230701
